FAERS Safety Report 5421560-8 (Version None)
Quarter: 2007Q3

REPORT INFORMATION
  Report Type: 
  Country: None (occurrence: None)
  Receive Date: 20070821
  Receipt Date: 20070809
  Transmission Date: 20080115
  Serious: Yes (Other)
  Sender: FDA-Public Use
  Company Number: US-PFIZER INC-2007065964

PATIENT
  Age: 56 Year
  Sex: Female

DRUGS (1)
  1. XANAX [Suspect]

REACTIONS (1)
  - SUICIDE ATTEMPT [None]
